FAERS Safety Report 10074224 (Version 1)
Quarter: 2014Q2

REPORT INFORMATION
  Report Type: Spontaneous
  Country: US (occurrence: US)
  Receive Date: 20140411
  Receipt Date: 20140411
  Transmission Date: 20141212
  Serious: No
  Sender: FDA-Public Use
  Company Number: US-SANOFI-AVENTIS-2013SA034597

PATIENT
  Age: 35 Year
  Sex: Female

DRUGS (2)
  1. ALLEGRA-D, 12 HR [Suspect]
     Indication: HYPERSENSITIVITY
     Route: 048
  2. ALLEGRA-D, 12 HR [Suspect]
     Indication: HYPERSENSITIVITY
     Dosage: 60/120 MG
     Route: 048

REACTIONS (1)
  - Migraine [Not Recovered/Not Resolved]
